FAERS Safety Report 6136930-2 (Version None)
Quarter: 2009Q1

REPORT INFORMATION
  Report Type: 
  Country: None (occurrence: None)
  Receive Date: 20090330
  Receipt Date: 20090323
  Transmission Date: 20090719
  Serious: Yes (Hospitalization, Disabling)
  Sender: FDA-Public Use
  Company Number: US-MERCK-0810USA01873

PATIENT
  Age: 60 Year
  Sex: Female
  Weight: 59 kg

DRUGS (4)
  1. FOSAMAX [Suspect]
     Indication: OSTEOPENIA
     Route: 048
     Dates: start: 20021212, end: 20060101
  2. CORTICOSTEROIDS (UNSPECIFIED) [Concomitant]
     Route: 065
     Dates: start: 19901026
  3. PREVACID [Concomitant]
     Indication: GASTROOESOPHAGEAL REFLUX DISEASE
     Route: 065
     Dates: start: 20020101
  4. ZYRTEC [Concomitant]
     Indication: HYPERSENSITIVITY
     Route: 065
     Dates: start: 20020101

REACTIONS (22)
  - CARDIOMEGALY [None]
  - CHRONIC SINUSITIS [None]
  - CYST [None]
  - DEPRESSION [None]
  - DYSGEUSIA [None]
  - DYSPNOEA EXERTIONAL [None]
  - FATIGUE [None]
  - FISTULA DISCHARGE [None]
  - HEADACHE [None]
  - JAW DISORDER [None]
  - LEUKOPENIA [None]
  - MAJOR DEPRESSION [None]
  - MASS [None]
  - OEDEMA PERIPHERAL [None]
  - ORAL NEOPLASM [None]
  - OSTEONECROSIS [None]
  - POLYP [None]
  - PSYCHOTIC DISORDER [None]
  - PULMONARY ARTERIAL HYPERTENSION [None]
  - PULMONARY HYPERTENSION [None]
  - SINUS DISORDER [None]
  - SUICIDAL IDEATION [None]
